FAERS Safety Report 6857115-8 (Version None)
Quarter: 2010Q3

REPORT INFORMATION
  Report Type: 
  Country: None (occurrence: None)
  Receive Date: 20100719
  Receipt Date: 20100709
  Transmission Date: 20110219
  Serious: Yes (Hospitalization)
  Sender: FDA-Public Use
  Company Number: B0664538A

PATIENT
  Sex: Male
  Weight: 83 kg

DRUGS (6)
  1. LAPATINIB [Suspect]
     Indication: METASTATIC CARCINOMA OF THE BLADDER
     Dosage: 1500MG PER DAY
     Route: 048
     Dates: start: 20100603, end: 20100626
  2. CLEXANE [Concomitant]
     Dates: start: 20100513
  3. TAZOCIN [Concomitant]
  4. ASPIRIN [Concomitant]
  5. NULYTELY [Concomitant]
     Dates: start: 20100626
  6. WARFARIN SODIUM [Concomitant]

REACTIONS (1)
  - RENAL FAILURE ACUTE [None]
